FAERS Safety Report 8420421-X (Version None)
Quarter: 2012Q2

REPORT INFORMATION
  Report Type: 
  Country: None (occurrence: None)
  Receive Date: 20120607
  Receipt Date: 20120606
  Transmission Date: 20120825
  Serious: Yes (Hospitalization)
  Sender: FDA-Public Use
  Company Number: US-GILEAD-2012-0056229

PATIENT
  Age: 19 Year
  Sex: Female

DRUGS (4)
  1. MIGRAL [Concomitant]
     Indication: HEADACHE
     Dosage: UNK
     Dates: start: 20120427, end: 20120427
  2. RITONAVIR [Suspect]
     Indication: HIV INFECTION
     Dosage: 100 MG, QD
     Route: 048
     Dates: start: 20110927, end: 20120426
  3. ATAZANAVIR [Suspect]
     Indication: HIV INFECTION
     Dosage: 300 MG, QD
     Route: 048
     Dates: start: 20110927, end: 20120426
  4. EMTRICITABINE/TENOFOVIR DISOPROXIL FUMARATE [Suspect]
     Indication: HIV INFECTION
     Dosage: 1 DF, QD
     Route: 048
     Dates: start: 20110927, end: 20120426

REACTIONS (1)
  - ERGOT POISONING [None]
